FAERS Safety Report 18599270 (Version 2)
Quarter: 2020Q4

REPORT INFORMATION
  Report Type: Spontaneous
  Country: JP (occurrence: JP)
  Receive Date: 20201210
  Receipt Date: 20201229
  Transmission Date: 20210114
  Serious: Yes (Other)
  Sender: FDA-Public Use
  Company Number: JP-OTSUKA-2020_030503

PATIENT

DRUGS (3)
  1. REXULTI [Suspect]
     Active Substance: BREXPIPRAZOLE
     Indication: DEMENTIA
     Dosage: 0.80 +/- 0.25 MG (STARTING DOSE), UNK
     Route: 065
  2. REXULTI [Suspect]
     Active Substance: BREXPIPRAZOLE
     Indication: NEUROPSYCHIATRIC SYMPTOMS
     Dosage: 1.30 +/- 0.56 MG (THE MAXIMUM DOSE FOR 3 MONTHS), UNK
     Route: 065
  3. REXULTI [Suspect]
     Active Substance: BREXPIPRAZOLE
     Dosage: 0.99 +/- 0.52 MG (THE MAINTENANCE DOSE AFTER 3 MONTHS), UNK
     Route: 065

REACTIONS (2)
  - Subarachnoid haemorrhage [Recovered/Resolved]
  - Product use in unapproved indication [Unknown]
